FAERS Safety Report 25817739 (Version 1)
Quarter: 2025Q3

REPORT INFORMATION
  Report Type: Spontaneous
  Country: US (occurrence: US)
  Receive Date: 20250918
  Receipt Date: 20250918
  Transmission Date: 20251021
  Serious: No
  Sender: ABBVIE
  Company Number: US-ABBVIE-6457975

PATIENT
  Age: 73 Year
  Sex: Female
  Weight: 45 kg

DRUGS (2)
  1. REFRESH TEARS PF [Suspect]
     Active Substance: CARBOXYMETHYLCELLULOSE SODIUM\GLYCERIN
     Indication: Dry eye
     Route: 047
     Dates: end: 202509
  2. REFRESH TEARS PF [Suspect]
     Active Substance: CARBOXYMETHYLCELLULOSE SODIUM\GLYCERIN
     Indication: Eye lubrication therapy

REACTIONS (2)
  - Eye pruritus [Recovering/Resolving]
  - Product contamination physical [Not Recovered/Not Resolved]

NARRATIVE: CASE EVENT DATE: 20250901
